FAERS Safety Report 8103605-X (Version None)
Quarter: 2011Q4

REPORT INFORMATION
  Report Type: 
  Country: None (occurrence: None)
  Receive Date: 20111222
  Receipt Date: 20110815
  Transmission Date: 20120403
  Serious: Yes (Hospitalization)
  Sender: FDA-Public Use
  Company Number: US-IGSA-IG908

PATIENT
  Age: 74 Year
  Sex: Male
  Weight: 97.1 kg

DRUGS (1)
  1. FLEBOGAMMA [Suspect]
     Indication: NEUROPATHY PERIPHERAL
     Dosage: 95 G IV
     Route: 042
     Dates: start: 20110412, end: 20110412

REACTIONS (4)
  - FEELING COLD [None]
  - DYSPNOEA [None]
  - BODY TEMPERATURE INCREASED [None]
  - CHILLS [None]
